FAERS Safety Report 5782326-2 (Version None)
Quarter: 2008Q2

REPORT INFORMATION
  Report Type: 
  Country: None (occurrence: None)
  Receive Date: 20080623
  Receipt Date: 20080606
  Transmission Date: 20081010
  Serious: No
  Sender: FDA-Public Use
  Company Number: US-BOEHRINGER INGELHEIM GMBH, GERMANY-2008-BP-08974BP

PATIENT
  Sex: Female

DRUGS (8)
  1. SPIRIVA [Suspect]
     Indication: ASTHMA
     Route: 055
     Dates: start: 20070101, end: 20080501
  2. SINGULAIR [Concomitant]
     Indication: ASTHMA
  3. NORVASC [Concomitant]
     Indication: HYPERTENSION
  4. ALBUTEROL [Concomitant]
     Indication: ASTHMA
  5. INTAL [Concomitant]
     Indication: ASTHMA
  6. OPTOVAIR [Concomitant]
  7. ALPHAGAN [Concomitant]
     Indication: GLAUCOMA
  8. ASPIRIN [Concomitant]
     Indication: ANTIPHOSPHOLIPID SYNDROME

REACTIONS (1)
  - VISUAL DISTURBANCE [None]
